FAERS Safety Report 13647727 (Version 4)
Quarter: 2019Q3

REPORT INFORMATION
  Report Type: Report from Study
  Country: None (occurrence: MX)
  Receive Date: 20170613
  Receipt Date: 20190705
  Transmission Date: 20191004
  Serious: Yes (Life-Threatening, Hospitalization)
  Sender: FDA-Public Use
  Company Number: MX-ABBVIE-17P-107-2005898-00

PATIENT
  Age: 73 Year
  Sex: Female
  Weight: 45 kg

DRUGS (7)
  1. ROBOTEK [Concomitant]
     Indication: BLOOD CHOLESTEROL
     Dosage: ROBOTEK 10MG, FREQUENCY TIME: 1 DAYS, FREQUENCY: 1.5
  2. TALPRAMIN [Concomitant]
     Indication: PRODUCT USED FOR UNKNOWN INDICATION
     Dosage: TALPRAMIN 25MG, 1 EVERY NIGHT, ONCE A DAY
  3. ROSUVASTATINE [Concomitant]
     Active Substance: ROSUVASTATIN
     Indication: DYSLIPIDAEMIA
     Route: 048
     Dates: start: 20170102
  4. KOMBIGLYZE XR [Concomitant]
     Active Substance: METFORMIN HYDROCHLORIDE\SAXAGLIPTIN HYDROCHLORIDE
     Indication: BLOOD GLUCOSE ABNORMAL
     Route: 048
     Dates: start: 20151008
  5. DIOVAN [Concomitant]
     Active Substance: VALSARTAN
     Indication: HYPERTENSION
     Dosage: 1 EVERY MORNING
     Route: 048
     Dates: start: 20160712
  6. CENTRUM SILVER [Concomitant]
     Active Substance: MINERALS\VITAMINS
     Indication: PRODUCT USED FOR UNKNOWN INDICATION
     Dosage: 2 EVERY DAY
  7. CONTROLIP TRILIPIX [Suspect]
     Active Substance: FENOFIBRATE
     Indication: DYSLIPIDAEMIA
     Dosage: 1 CAPSULE WITH MEAL ONCE A DAY
     Route: 048
     Dates: start: 20170131

REACTIONS (2)
  - Suicide attempt [Recovered/Resolved]
  - Depression [Recovered/Resolved]

NARRATIVE: CASE EVENT DATE: 20170328
